FAERS Safety Report 5234086-1 (Version None)
Quarter: 2007Q1

REPORT INFORMATION
  Report Type: 
  Country: None (occurrence: None)
  Receive Date: 20070208
  Receipt Date: 20070130
  Transmission Date: 20070707
  Serious: Yes (Hospitalization)
  Sender: FDA-Public Use
  Company Number: ES-PFIZER INC-2007007515

PATIENT
  Age: 78 Year
  Sex: Male

DRUGS (6)
  1. ALDACTONE [Suspect]
     Indication: CARDIAC FAILURE
     Route: 048
     Dates: start: 20061031, end: 20061103
  2. HYDROCHLOROTHIAZIDE [Interacting]
     Indication: CARDIAC FAILURE
     Route: 048
     Dates: start: 20061031, end: 20061103
  3. ENALAPRIL MALEATE [Interacting]
     Indication: CARDIAC FAILURE
     Dosage: DAILY DOSE:20MG-FREQ:BID:EVERY DAY
     Route: 048
     Dates: start: 20061031, end: 20061103
  4. OMEPRAZOLE [Concomitant]
     Dosage: DAILY DOSE:20MG-FREQ:DAILY
     Route: 048
  5. DIGOXIN [Concomitant]
     Indication: ATRIAL FIBRILLATION
     Route: 048
  6. CARVEDILOL [Concomitant]
     Indication: CARDIAC FAILURE
     Dosage: DAILY DOSE:50MG-FREQ:DAILY
     Route: 048
     Dates: start: 20061031, end: 20061103

REACTIONS (2)
  - DRUG INTERACTION [None]
  - HYPERKALAEMIA [None]
